FAERS Safety Report 4831286-7 (Version None)
Quarter: 2005Q4

REPORT INFORMATION
  Report Type: 
  Country: None (occurrence: None)
  Receive Date: 20051114
  Receipt Date: 20051017
  Transmission Date: 20060501
  Serious: Yes (Disabling, Other)
  Sender: FDA-Public Use
  Company Number: 2005RR-00929

PATIENT
  Age: 39 Year
  Sex: Female

DRUGS (2)
  1. LISINOPRIL [Suspect]
     Indication: BLOOD PRESSURE INCREASED
     Dosage: 5 MG, QD, ORAL
     Route: 048
     Dates: start: 20050917
  2. NORIDAY CONTACEPTIVE [Concomitant]

REACTIONS (5)
  - BLOOD PRESSURE INCREASED [None]
  - DIARRHOEA [None]
  - HEADACHE [None]
  - OCULAR HYPERAEMIA [None]
  - VOMITING [None]
